FAERS Safety Report 7024638-0 (Version None)
Quarter: 2010Q4

REPORT INFORMATION
  Report Type: 
  Country: None (occurrence: None)
  Receive Date: 20101001
  Receipt Date: 20100913
  Transmission Date: 20110411
  Serious: Yes (Congenital Anomaly)
  Sender: FDA-Public Use
  Company Number: DK-NOVEN-10DK001342

PATIENT
  Age: 37 Year
  Sex: Female
  Weight: 53 kg

DRUGS (1)
  1. PAROXETINE HCL [Suspect]
     Indication: ANTIDEPRESSANT THERAPY
     Dosage: 20 MG, QD
     Route: 064

REACTIONS (2)
  - CARCINOGENIC EFFECT IN OFFSPRING [None]
  - DRUG EXPOSURE DURING PREGNANCY [None]
